FAERS Safety Report 17661053 (Version 1)
Quarter: 2020Q2

REPORT INFORMATION
  Report Type: Spontaneous
  Country: ES (occurrence: ES)
  Receive Date: 20200413
  Receipt Date: 20200413
  Transmission Date: 20200713
  Serious: Yes (Hospitalization)
  Sender: FDA-Public Use
  Company Number: ES-ACCORD-178621

PATIENT
  Age: 82 Year
  Sex: Female

DRUGS (10)
  1. PANTOPRAZOLE ALMUS [Concomitant]
     Active Substance: PANTOPRAZOLE SODIUM
     Dosage: PANTOPRAZOLE ALMUS 20 MG  EFG, 28 TABLETS
  2. STALEVO [Concomitant]
     Active Substance: CARBIDOPA\ENTACAPONE\LEVODOPA
  3. QUETIAPINE. [Suspect]
     Active Substance: QUETIAPINE
     Indication: PRODUCT USED FOR UNKNOWN INDICATION
     Dosage: 12,5
     Route: 048
     Dates: start: 20200212, end: 20200213
  4. ESCITALOPRAM [Concomitant]
     Active Substance: ESCITALOPRAM OXALATE
     Dosage: 20 MG / ML , 1 BOTTLE OF 15 ML
  5. AZOPT [Concomitant]
     Active Substance: BRINZOLAMIDE
     Dosage: AZOPT 10 MG / ML, 1 BOTTLE OF 5 ML
  6. ADIRO [Concomitant]
     Active Substance: ASPIRIN
  7. RIVOTRIL [Concomitant]
     Active Substance: CLONAZEPAM
     Dosage: 0.5 MG TABLETS, 60 TABLETS
  8. XADAGO [Concomitant]
     Active Substance: SAFINAMIDE MESYLATE
     Dosage: XADAGO 100 MG 30 TABLETS
  9. TRANGOREX [Concomitant]
     Active Substance: AMIODARONE HYDROCHLORIDE
     Dosage: TRANGOREX 200 MG TABLETS, 30 TABLETS
  10. GABAPENTIN. [Concomitant]
     Active Substance: GABAPENTIN
     Dosage: EFG, 90 CAPSULES

REACTIONS (3)
  - Depressed level of consciousness [Recovering/Resolving]
  - Somnolence [Recovering/Resolving]
  - Sopor [Recovering/Resolving]

NARRATIVE: CASE EVENT DATE: 20200213
